FAERS Safety Report 5169955-4 (Version None)
Quarter: 2006Q4

REPORT INFORMATION
  Report Type: 
  Country: None (occurrence: None)
  Receive Date: 20061212
  Receipt Date: 20061205
  Transmission Date: 20070319
  Serious: Yes (Other)
  Sender: FDA-Public Use
  Company Number: BR-ROCHE-474108

PATIENT
  Age: 14 Year
  Sex: Female

DRUGS (1)
  1. ROACUTAN [Suspect]
     Indication: ACNE
     Route: 048
     Dates: start: 20060515, end: 20061115

REACTIONS (4)
  - DRUG EXPOSURE DURING PREGNANCY [None]
  - MENSTRUATION DELAYED [None]
  - NO ADVERSE EFFECT [None]
  - PREGNANCY [None]
